FAERS Safety Report 8535156-2 (Version None)
Quarter: 2012Q3

REPORT INFORMATION
  Report Type: 
  Country: None (occurrence: None)
  Receive Date: 20120724
  Receipt Date: 20120718
  Transmission Date: 20120928
  Serious: Yes (Other)
  Sender: FDA-Public Use
  Company Number: BR-PFIZER INC-2012174539

PATIENT
  Age: 64 Year
  Sex: Male
  Weight: 48 kg

DRUGS (10)
  1. NEOZINE [Concomitant]
     Indication: SLEEP DISORDER
     Dosage: 100 MG, 2X/DAY
     Dates: start: 20070101
  2. ZYPREXA [Concomitant]
     Indication: SCHIZOPHRENIA
     Dosage: 5 MG, 4X/DAY (ONE IN THE MORNING AND THREE AT NIGHT)
     Dates: start: 20110101
  3. VARENICLINE TARTRATE [Suspect]
     Dosage: UNK
     Route: 048
     Dates: start: 20120714
  4. PHENERGAN [Concomitant]
     Indication: DETOXIFICATION
     Dosage: 25 MG, 1X/DAY
     Dates: start: 19790101
  5. CLONAZEPAM [Concomitant]
     Indication: SLEEP DISORDER
     Dosage: 2 MG, 3X/DAY (AT NIGHT)
  6. BUDESONIDE [Concomitant]
     Indication: FATIGUE
     Dosage: STRENGTH 6/200, EVERY 12 HOURS (INHALER)
     Route: 055
     Dates: start: 20111201
  7. VARENICLINE TARTRATE [Suspect]
     Dosage: UNSPECIFIED DOSE TWICE DAILY
     Route: 048
  8. COMBIVENT [Concomitant]
     Indication: DYSPNOEA
     Dosage: AS NEEDED, WHEN FEELING SHORTNESS OF BREATH (NOT DAILY)
     Dates: start: 20111201
  9. VARENICLINE TARTRATE [Suspect]
     Indication: TOBACCO USER
     Dosage: UNK
     Route: 048
     Dates: start: 20111201
  10. RISPERIDONE [Concomitant]
     Indication: SCHIZOPHRENIA
     Dosage: 2 MG, 1X/DAY (AT NIGHT)
     Dates: start: 20110101

REACTIONS (1)
  - LUNG DISORDER [None]
